FAERS Safety Report 6934206-4 (Version None)
Quarter: 2010Q3

REPORT INFORMATION
  Report Type: 
  Country: None (occurrence: None)
  Receive Date: 20100820
  Receipt Date: 20100810
  Transmission Date: 20110219
  Serious: Yes (Other)
  Sender: FDA-Public Use
  Company Number: A0876605A

PATIENT
  Sex: Female

DRUGS (1)
  1. NICORETTE [Suspect]
     Indication: SMOKING CESSATION THERAPY
     Dosage: 2MG SEE DOSAGE TEXT
     Route: 002
     Dates: start: 20080101

REACTIONS (8)
  - ADVERSE DRUG REACTION [None]
  - HYPERINSULINAEMIA [None]
  - HYPERTENSION [None]
  - INFECTION [None]
  - INTENTIONAL DRUG MISUSE [None]
  - LYMPHOCYTOSIS [None]
  - LYMPHOEDEMA [None]
  - NICOTINE DEPENDENCE [None]
